FAERS Safety Report 7369940-8 (Version None)
Quarter: 2011Q1

REPORT INFORMATION
  Report Type: 
  Country: None (occurrence: None)
  Receive Date: 20110323
  Receipt Date: 20110127
  Transmission Date: 20110831
  Serious: Yes (Hospitalization)
  Sender: FDA-Public Use
  Company Number: US-NOVOPROD-321735

PATIENT
  Sex: Male

DRUGS (3)
  1. LANTUS [Concomitant]
     Indication: DIABETES MELLITUS
     Dosage: UNK, QD AT NIGHT
  2. GLIMEPIRIDE A [Concomitant]
     Indication: DIABETES MELLITUS
  3. NOVOLOG [Suspect]
     Indication: DIABETES MELLITUS
     Dosage: SLIDING SCALE TID
     Dates: start: 20100101

REACTIONS (1)
  - ATRIAL FIBRILLATION [None]
